FAERS Safety Report 19512097 (Version 1)
Quarter: 2021Q3

REPORT INFORMATION
  Report Type: Spontaneous
  Country: IN (occurrence: IN)
  Receive Date: 20210709
  Receipt Date: 20210709
  Transmission Date: 20211014
  Serious: Yes (Hospitalization)
  Sender: FDA-Public Use
  Company Number: IN-MYLANLABS-2021M1039543

PATIENT
  Age: 55 Year
  Sex: Male

DRUGS (3)
  1. DEXAMETHASONE. [Suspect]
     Active Substance: DEXAMETHASONE
     Indication: COVID-19
     Dosage: 6 MILLIGRAM, QD
     Route: 042
  2. REMDESIVIR. [Concomitant]
     Active Substance: REMDESIVIR
     Indication: COVID-19
     Dosage: 200 MILLIGRAM,200 MG ON DAY 1 AND 100 MG ON DAYS 2?5
     Route: 065
  3. REMDESIVIR. [Concomitant]
     Active Substance: REMDESIVIR
     Dosage: 100 MILLIGRAM
     Route: 065

REACTIONS (3)
  - Pleural effusion [Unknown]
  - Off label use [Recovering/Resolving]
  - Pulmonary mucormycosis [Recovered/Resolved]
